FAERS Safety Report 16955332 (Version 1)
Quarter: 2019Q4

REPORT INFORMATION
  Report Type: Spontaneous
  Country: US (occurrence: US)
  Receive Date: 20191024
  Receipt Date: 20191024
  Transmission Date: 20200122
  Serious: No
  Sender: FDA-Public Use
  Company Number: US-EMMAUS MEDICAL, INC.-EMM201908-000250

PATIENT
  Sex: Male

DRUGS (4)
  1. HYDREA [Concomitant]
     Active Substance: HYDROXYUREA
     Indication: SICKLE CELL DISEASE
     Dosage: SHE WAS TAKING HYDREA BEFORE ENDARI AND STARTED TAKING IT AGAIN AFTER STOPPING TAKING THE ENDARI
  2. ASPIRIN. [Concomitant]
     Active Substance: ASPIRIN
     Indication: MINERAL SUPPLEMENTATION
  3. ENDARI [Suspect]
     Active Substance: GLUTAMINE
     Indication: SICKLE CELL DISEASE
     Route: 048
     Dates: start: 20190729
  4. FOLIC ACID. [Concomitant]
     Active Substance: FOLIC ACID
     Indication: MINERAL SUPPLEMENTATION

REACTIONS (1)
  - Diarrhoea [Recovered/Resolved]
